FAERS Safety Report 13558045 (Version 2)
Quarter: 2017Q2

REPORT INFORMATION
  Report Type: Spontaneous
  Country: US (occurrence: US)
  Receive Date: 20170518
  Receipt Date: 20170626
  Transmission Date: 20170830
  Serious: No
  Sender: FDA-Public Use
  Company Number: US-GLAXOSMITHKLINE-US2017068183

PATIENT
  Age: 53 Year
  Sex: Female
  Weight: 81.95 kg

DRUGS (3)
  1. GAS-X [Suspect]
     Active Substance: DIMETHICONE
     Indication: FLATULENCE
     Dosage: UNK
     Dates: start: 2017
  2. MORPHINE SULFATE. [Suspect]
     Active Substance: MORPHINE SULFATE
     Indication: PRODUCT USED FOR UNKNOWN INDICATION
  3. ALLI [Suspect]
     Active Substance: ORLISTAT
     Indication: WEIGHT LOSS DIET
     Dosage: 60 MG, UNK
     Route: 048
     Dates: start: 20170401, end: 20170414

REACTIONS (10)
  - Abdominal pain [Recovered/Resolved]
  - Abdominal tenderness [Recovered/Resolved]
  - Abdominal discomfort [Unknown]
  - Abdominal distension [Recovered/Resolved]
  - Drug hypersensitivity [Unknown]
  - Abnormal faeces [Not Recovered/Not Resolved]
  - Flatulence [Recovered/Resolved]
  - Drug ineffective [Unknown]
  - Discomfort [Unknown]
  - Ill-defined disorder [Unknown]

NARRATIVE: CASE EVENT DATE: 20170401
